FAERS Safety Report 25596268 (Version 1)
Quarter: 2025Q3

REPORT INFORMATION
  Report Type: Spontaneous
  Country: US (occurrence: None)
  Receive Date: 20250722
  Receipt Date: 20250722
  Transmission Date: 20251021
  Serious: Yes (Hospitalization, Other)
  Sender: FDA-CTU
  Company Number: None

PATIENT
  Age: 61 Year
  Sex: Female
  Weight: 55.34 kg

DRUGS (3)
  1. HERBALS\TURMERIC [Suspect]
     Active Substance: HERBALS\TURMERIC
     Indication: Arthralgia
     Dosage: 1 CAPFULL ONCE A DAY TAKEN BY MOUTH?
     Route: 048
     Dates: start: 202505, end: 20250618
  2. LEVOXYL [Concomitant]
     Active Substance: LEVOTHYROXINE SODIUM
  3. Mary Ruth Multivitamin [Concomitant]

REACTIONS (3)
  - Hepatic enzyme increased [None]
  - Hepatitis [None]
  - Cholecystitis [None]

NARRATIVE: CASE EVENT DATE: 20250621
